FAERS Safety Report 22162735 (Version 1)
Quarter: 2023Q1

REPORT INFORMATION
  Report Type: Spontaneous
  Country: None (occurrence: US)
  Receive Date: 20230331
  Receipt Date: 20230331
  Transmission Date: 20230418
  Serious: No
  Sender: FDA-Public Use
  Company Number: US-Breckenridge Pharmaceutical, Inc.-2139778

PATIENT
  Sex: Female

DRUGS (1)
  1. DULOXETINE [Suspect]
     Active Substance: DULOXETINE
     Indication: Depression
     Route: 048

REACTIONS (6)
  - Night sweats [Not Recovered/Not Resolved]
  - Weight increased [Not Recovered/Not Resolved]
  - Emotional disorder [Unknown]
  - Crying [Unknown]
  - Insomnia [Unknown]
  - Therapeutic product effect incomplete [Not Recovered/Not Resolved]
